FAERS Safety Report 5958171-1 (Version None)
Quarter: 2008Q4

REPORT INFORMATION
  Report Type: 
  Country: None (occurrence: None)
  Receive Date: 20081119
  Receipt Date: 20081105
  Transmission Date: 20090506
  Serious: Yes (Death, Disabling, Other)
  Sender: FDA-Public Use
  Company Number: SV-GENENTECH-271501

PATIENT
  Age: 63 Year
  Sex: Male

DRUGS (2)
  1. AVASTIN [Suspect]
     Indication: GLIOMA
     Dosage: 10 MG/KG, Q15D
     Route: 042
     Dates: start: 20080408, end: 20080601
  2. IRINOTECAN HYDROCHLORIDE [Concomitant]
     Indication: DRUG USE FOR UNKNOWN INDICATION
     Dosage: 340 MG/M2, Q15D
     Dates: start: 20080408, end: 20080601

REACTIONS (3)
  - CANDIDA SEPSIS [None]
  - IMPAIRED HEALING [None]
  - LARGE INTESTINAL OBSTRUCTION [None]
